FAERS Safety Report 8169966-0 (Version None)
Quarter: 2012Q1

REPORT INFORMATION
  Report Type: 
  Country: None (occurrence: None)
  Receive Date: 20120228
  Receipt Date: 20120228
  Transmission Date: 20120608
  Serious: Yes (Other)
  Sender: FDA-Public Use
  Company Number: None

PATIENT
  Age: 51 Year
  Sex: Male
  Weight: 70.306 kg

DRUGS (1)
  1. XEOMIN [Suspect]
     Indication: SKIN WRINKLING
     Dosage: 6 UNITS
     Route: 058
     Dates: start: 20120110, end: 20120110

REACTIONS (2)
  - PERIORBITAL OEDEMA [None]
  - PRODUCT QUALITY ISSUE [None]
